FAERS Safety Report 16049223 (Version 1)
Quarter: 2019Q1

REPORT INFORMATION
  Report Type: Spontaneous
  Country: US (occurrence: US)
  Receive Date: 20190307
  Receipt Date: 20190307
  Transmission Date: 20190418
  Serious: Yes (Hospitalization)
  Sender: FDA-Public Use
  Company Number: US-BAYER-2019-041982

PATIENT
  Age: 72 Year
  Sex: Male

DRUGS (4)
  1. LISINOPRIL. [Concomitant]
     Active Substance: LISINOPRIL
  2. ONDANSETRON [Concomitant]
     Active Substance: ONDANSETRON
  3. STIVARGA [Suspect]
     Active Substance: REGORAFENIB
     Indication: SMALL INTESTINE CARCINOMA
     Dosage: 160 MG, QD  (FOR 21 DAYS ON AND 7 DAYS OFF)
     Route: 048
     Dates: start: 20180206, end: 20181231
  4. MOTOFEN [MIRTAZAPINE] [Concomitant]

REACTIONS (4)
  - Rhabdomyolysis [Recovered/Resolved with Sequelae]
  - Product use in unapproved indication [None]
  - Off label use [None]
  - Renal failure [Recovered/Resolved with Sequelae]

NARRATIVE: CASE EVENT DATE: 20180206
